FAERS Safety Report 6720518-6 (Version None)
Quarter: 2010Q2

REPORT INFORMATION
  Report Type: 
  Country: None (occurrence: None)
  Receive Date: 20100506
  Receipt Date: 20100422
  Transmission Date: 20101027
  Serious: Yes (Congenital Anomaly)
  Sender: FDA-Public Use
  Company Number: 167-20484-09090445

PATIENT
  Sex: Female
  Weight: 4.14 kg

DRUGS (7)
  1. INNOHEP [Suspect]
     Indication: DRUG EXPOSURE DURING PREGNANCY
     Dosage: TRANSPLACENTAL
     Route: 064
     Dates: start: 20061216, end: 20070305
  2. SALBUTAMOL (SALBUTAMOL) [Concomitant]
  3. PULMICORT [Concomitant]
  4. ACETAMINOPHEN [Concomitant]
  5. CODEINE PHOSPHATE (CODEINE PHOSPHATE) [Concomitant]
  6. GAVISCON [Concomitant]
  7. SODIUM CITRATE [Concomitant]

REACTIONS (2)
  - MATERNAL DRUGS AFFECTING FOETUS [None]
  - TALIPES [None]
